FAERS Safety Report 5420799-5 (Version None)
Quarter: 2007Q3

REPORT INFORMATION
  Report Type: 
  Country: None (occurrence: None)
  Receive Date: 20070821
  Receipt Date: 20070814
  Transmission Date: 20080115
  Serious: Yes (Other)
  Sender: FDA-Public Use
  Company Number: US-AMGEN-US237933

PATIENT
  Sex: Female
  Weight: 70.4 kg

DRUGS (10)
  1. ENBREL [Suspect]
     Indication: RHEUMATOID ARTHRITIS
     Route: 065
     Dates: start: 20070605, end: 20070725
  2. PRENATAL VITAMINS [Concomitant]
     Route: 048
     Dates: start: 20050101, end: 20070727
  3. FISH OIL [Concomitant]
     Indication: RHEUMATOID ARTHRITIS
     Route: 048
     Dates: start: 20070605, end: 20070727
  4. CALCIUM CHLORIDE [Concomitant]
     Indication: RHEUMATOID ARTHRITIS
     Route: 048
     Dates: start: 20070605, end: 20070727
  5. YASMIN [Concomitant]
     Route: 048
     Dates: start: 20070606, end: 20070706
  6. PREDNISONE [Concomitant]
     Indication: RHEUMATOID ARTHRITIS
     Route: 048
     Dates: start: 20070605, end: 20070727
  7. SYNTHROID [Concomitant]
     Route: 048
     Dates: start: 20070605, end: 20070727
  8. METFORMIN HCL [Concomitant]
     Route: 048
     Dates: start: 20070605, end: 20070727
  9. TYLENOL [Concomitant]
     Route: 048
     Dates: start: 20070717, end: 20070717
  10. HERBAL SUPPLEMENT [Concomitant]
     Route: 048
     Dates: start: 20070613, end: 20070719

REACTIONS (1)
  - ABORTION SPONTANEOUS [None]
